FAERS Safety Report 15691648 (Version 1)
Quarter: 2018Q4

REPORT INFORMATION
  Report Type: Spontaneous
  Country: US (occurrence: US)
  Receive Date: 20181205
  Receipt Date: 20181205
  Transmission Date: 20190205
  Serious: Yes (Other)
  Sender: FDA-Public Use
  Company Number: None

PATIENT
  Age: 38 Year
  Sex: Female
  Weight: 50.4 kg

DRUGS (9)
  1. GUMMY VITAMINS AND GUMMY FIBER [Concomitant]
  2. TROKENDI [Concomitant]
     Active Substance: TOPIRAMATE
  3. OSTEO BI-FLEX, [Concomitant]
  4. RELPAX [Concomitant]
     Active Substance: ELETRIPTAN HYDROBROMIDE
  5. AIMOVIG [Suspect]
     Active Substance: ERENUMAB-AOOE
     Indication: MIGRAINE PROPHYLAXIS
     Dosage: ?          QUANTITY:1 INJECTION(S);OTHER FREQUENCY:1 TIME A MONTH;OTHER ROUTE:INJECTED INTO THIGH?
     Dates: start: 20181117
  6. ADDERALL [Concomitant]
     Active Substance: AMPHETAMINE ASPARTATE\AMPHETAMINE SULFATE\DEXTROAMPHETAMINE SACCHARATE\DEXTROAMPHETAMINE SULFATE
  7. VITAMIN D [Concomitant]
     Active Substance: CHOLECALCIFEROL
  8. VITAMIN B [Concomitant]
     Active Substance: VITAMIN B
  9. CRANBERRY. [Concomitant]
     Active Substance: CRANBERRY

REACTIONS (12)
  - Injection site pain [None]
  - Impaired work ability [None]
  - Influenza like illness [None]
  - Arthralgia [None]
  - Pain in extremity [None]
  - Oral mucosal blistering [None]
  - Blister [None]
  - Pruritus [None]
  - Treatment failure [None]
  - Lethargy [None]
  - Headache [None]
  - Oropharyngeal blistering [None]

NARRATIVE: CASE EVENT DATE: 20181126
